FAERS Safety Report 4634236-1 (Version None)
Quarter: 2005Q2

REPORT INFORMATION
  Report Type: 
  Country: None (occurrence: None)
  Receive Date: 20050413
  Receipt Date: 20050408
  Transmission Date: 20051028
  Serious: Yes (Life-Threatening)
  Sender: FDA-Public Use
  Company Number: PHBS2005JP04988

PATIENT
  Sex: Male

DRUGS (1)
  1. PARLODEL [Suspect]
     Indication: PITUITARY TUMOUR
     Dosage: UNK, UNK
     Route: 048

REACTIONS (2)
  - CARDIOGENIC SHOCK [None]
  - DEPRESSED LEVEL OF CONSCIOUSNESS [None]
